FAERS Safety Report 11503934 (Version 1)
Quarter: 2015Q3

REPORT INFORMATION
  Report Type: Spontaneous
  Country: US (occurrence: US)
  Receive Date: 20150914
  Receipt Date: 20150914
  Transmission Date: 20151125
  Serious: Yes (Other)
  Sender: FDA-Public Use
  Company Number: US-TAKEDA-TPA2013A04892

PATIENT

DRUGS (3)
  1. ACTOS [Suspect]
     Active Substance: PIOGLITAZONE HYDROCHLORIDE
     Indication: TYPE 2 DIABETES MELLITUS
     Dosage: 15MG, 30MG, 45MG
     Route: 048
     Dates: start: 20040401, end: 20090205
  2. GLUCOTROL [Concomitant]
     Active Substance: GLIPIZIDE
     Dosage: 10 MG, UNK
     Dates: start: 1998
  3. METFORMIN [Concomitant]
     Active Substance: METFORMIN HYDROCHLORIDE
     Dosage: 500 MG, UNK
     Dates: start: 20040115

REACTIONS (1)
  - Bladder cancer [Not Recovered/Not Resolved]

NARRATIVE: CASE EVENT DATE: 20111018
